FAERS Safety Report 8163981-9 (Version None)
Quarter: 2012Q1

REPORT INFORMATION
  Report Type: 
  Country: None (occurrence: None)
  Receive Date: 20120224
  Receipt Date: 20120214
  Transmission Date: 20120608
  Serious: Yes (Death, Hospitalization, Other)
  Sender: FDA-Public Use
  Company Number: US-ACTELION-A-US2011-53866

PATIENT

DRUGS (6)
  1. OXYGEN [Concomitant]
  2. TRACLEER [Suspect]
     Indication: PULMONARY ARTERIAL HYPERTENSION
     Dosage: 31.2 MG BID
     Route: 048
     Dates: start: 20101119, end: 20111230
  3. REVATIO [Concomitant]
     Dosage: 10 MG, QID
  4. REMODULIN [Concomitant]
  5. LASIX [Concomitant]
  6. DIGOXIN [Concomitant]

REACTIONS (7)
  - DISEASE PROGRESSION [None]
  - ABNORMAL BEHAVIOUR [None]
  - TERMINAL STATE [None]
  - CONVULSION [None]
  - NO THERAPEUTIC RESPONSE [None]
  - OXYGEN SATURATION DECREASED [None]
  - PULMONARY ARTERIAL HYPERTENSION [None]
